FAERS Safety Report 8075295-6 (Version None)
Quarter: 2012Q1

REPORT INFORMATION
  Report Type: 
  Country: None (occurrence: None)
  Receive Date: 20120127
  Receipt Date: 20120118
  Transmission Date: 20120608
  Serious: Yes (Hospitalization)
  Sender: FDA-Public Use
  Company Number: US-BAYER-2011-059769

PATIENT
  Age: 52 Year
  Sex: Female
  Weight: 50.34 kg

DRUGS (20)
  1. ZANTAC [Concomitant]
     Indication: GASTROOESOPHAGEAL REFLUX DISEASE
     Dosage: UNK
     Dates: start: 20020101
  2. FISH OIL [Concomitant]
     Indication: SUPPLEMENTATION THERAPY
     Dosage: UNK
     Dates: start: 20080101
  3. AMERGE [Concomitant]
     Dosage: UNK
     Dates: start: 20080327
  4. YAZ [Suspect]
     Indication: MENORRHAGIA
     Dosage: UNK
     Dates: start: 20061001, end: 20080601
  5. NEXIUM [Concomitant]
     Indication: GASTROOESOPHAGEAL REFLUX DISEASE
     Dosage: UNK
     Dates: start: 20030101, end: 20080623
  6. VITAMIN B-12 [Concomitant]
     Indication: PERNICIOUS ANAEMIA
     Dosage: UNK
     Dates: start: 19760101
  7. DROSPIRENONE AND ETHINYL ESTRADIOL [Suspect]
     Indication: MENORRHAGIA
     Dosage: UNK
     Dates: start: 20061001, end: 20090101
  8. IRON [Concomitant]
     Indication: ANAEMIA
     Dosage: UNK
     Dates: start: 20010101
  9. CALTRATE [CALCIUM,VITAMIN D NOS] [Concomitant]
     Indication: OSTEOPOROSIS
     Dosage: UNK
     Dates: start: 20050101
  10. IMURAN [Concomitant]
     Indication: CROHN'S DISEASE
     Dosage: UNK
     Dates: start: 20000101, end: 20090223
  11. REMICADE [Concomitant]
     Indication: CROHN'S DISEASE
     Dosage: UNK
     Dates: start: 20050101
  12. YASMIN [Suspect]
     Indication: MENORRHAGIA
     Dosage: UNK
     Dates: start: 20050101, end: 20061001
  13. ZESTORETIC [Concomitant]
     Indication: HYPERTENSION
     Dosage: UNK
     Dates: start: 20050101
  14. TIMOLOL MALEATE [Concomitant]
     Indication: GLAUCOMA
     Dosage: UNK
     Dates: start: 19990101
  15. ZOCOR [Concomitant]
     Indication: BLOOD CHOLESTEROL INCREASED
     Dosage: UNK
     Dates: start: 20080101, end: 20100101
  16. EXCEDRIN (MIGRAINE) [Concomitant]
     Indication: MIGRAINE
     Dosage: UNK
     Dates: start: 20080101
  17. CIPROFLOXACIN [Concomitant]
     Dosage: UNK
     Dates: start: 20080303
  18. XALATAN [Concomitant]
     Indication: GLAUCOMA
     Dosage: UNK
     Dates: start: 19990101
  19. MAGNESIUM OXIDE [Concomitant]
     Indication: MIGRAINE
     Dosage: UNK
     Dates: start: 20030101
  20. MULTI-VITAMINS [Concomitant]
     Indication: CROHN'S DISEASE
     Dosage: UNK
     Dates: start: 20080101

REACTIONS (6)
  - PAIN [None]
  - INJURY [None]
  - EMOTIONAL DISTRESS [None]
  - CHEST PAIN [None]
  - MYOCARDIAL INFARCTION [None]
  - FATIGUE [None]
